FAERS Safety Report 6703023-2 (Version None)
Quarter: 2010Q2

REPORT INFORMATION
  Report Type: 
  Country: None (occurrence: None)
  Receive Date: 20100429
  Receipt Date: 20100429
  Transmission Date: 20101027
  Serious: Yes (Life-Threatening, Hospitalization)
  Sender: FDA-Public Use
  Company Number: None

PATIENT
  Age: 68 Year
  Sex: Male

DRUGS (1)
  1. IRON DEXTRAN [Suspect]
     Indication: IRON DEFICIENCY ANAEMIA
     Dosage: 1600 MG OTHER IV
     Route: 042
     Dates: start: 20090429, end: 20090429

REACTIONS (11)
  - COLD SWEAT [None]
  - DIZZINESS [None]
  - FAECES DISCOLOURED [None]
  - HYPERHIDROSIS [None]
  - HYPOTENSION [None]
  - HYPOVENTILATION [None]
  - NAUSEA [None]
  - PULSE ABSENT [None]
  - SOMNOLENCE [None]
  - SYNCOPE [None]
  - VOMITING [None]
